FAERS Safety Report 4732475-2 (Version None)
Quarter: 2005Q3

REPORT INFORMATION
  Report Type: 
  Country: None (occurrence: None)
  Receive Date: 20050803
  Receipt Date: 20050727
  Transmission Date: 20060218
  Serious: Yes (Death)
  Sender: FDA-Public Use
  Company Number: US-JNJFOC-20050706101

PATIENT
  Age: 81 Year
  Sex: Female
  Weight: 27.22 kg

DRUGS (1)
  1. RISPERDAL CONSTA [Suspect]
     Indication: SCHIZOPHRENIA
     Route: 030
     Dates: start: 20040901

REACTIONS (7)
  - ANOREXIA [None]
  - CARDIOVASCULAR DISORDER [None]
  - FAILURE TO THRIVE [None]
  - LETHARGY [None]
  - OEDEMA PERIPHERAL [None]
  - PROTEIN TOTAL DECREASED [None]
  - WEIGHT DECREASED [None]
